FAERS Safety Report 9791694 (Version 3)
Quarter: 2014Q1

REPORT INFORMATION
  Report Type: Spontaneous
  Country: US (occurrence: US)
  Receive Date: 20140102
  Receipt Date: 20140207
  Transmission Date: 20141002
  Serious: Yes (Other)
  Sender: FDA-Public Use
  Company Number: US-BEH-2013035403

PATIENT
  Age: 42 Year
  Sex: Male
  Weight: 76 kg

DRUGS (13)
  1. PRIVIGEN [Suspect]
     Indication: HYPOGAMMAGLOBULINAEMIA
     Route: 042
  2. PRIVIGEN [Suspect]
     Dosage: OVER 2-3 HOURS
     Route: 042
  3. PRIVIGEN [Suspect]
     Dosage: OVER 2-3 HOURS
     Route: 042
  4. RITUXAN [Concomitant]
     Indication: NON-HODGKIN^S LYMPHOMA
  5. SODIUM CHLORIDE [Concomitant]
  6. DIPHENHYDRAMINE [Concomitant]
  7. HEPARIN [Concomitant]
  8. EPI-PEN [Concomitant]
  9. ADVIL [Concomitant]
  10. NEUPOGEN [Concomitant]
  11. NEULASTA [Concomitant]
  12. BENDAMUSTINE [Concomitant]
  13. AZITHROMYCIN [Concomitant]

REACTIONS (11)
  - Respiratory tract infection [Unknown]
  - Cough [Unknown]
  - Night sweats [Unknown]
  - Headache [Unknown]
  - Productive cough [Unknown]
  - Oropharyngeal pain [Unknown]
  - Ear infection [Unknown]
  - Eye infection [Unknown]
  - Rhinitis [Unknown]
  - Sinusitis [Unknown]
  - Upper respiratory tract infection [Unknown]
